FAERS Safety Report 25015759 (Version 1)
Quarter: 2025Q1

REPORT INFORMATION
  Report Type: Spontaneous
  Country: DE (occurrence: DE)
  Receive Date: 20250227
  Receipt Date: 20250227
  Transmission Date: 20250408
  Serious: Yes (Death, Other)
  Sender: Haleon PLC
  Company Number: DE-HALEON-2168553

PATIENT
  Age: 72 Year
  Sex: Female
  Weight: 130 kg

DRUGS (1)
  1. DICLOFENAC [Suspect]
     Active Substance: DICLOFENAC
     Indication: Arthralgia
     Route: 003
     Dates: start: 20000101, end: 20170101

REACTIONS (5)
  - Small intestinal perforation [Fatal]
  - Laboratory test abnormal [Fatal]
  - Cholelithiasis [Unknown]
  - Product use issue [Unknown]
  - Intentional product misuse [Unknown]

NARRATIVE: CASE EVENT DATE: 20150101
